FAERS Safety Report 9133592 (Version 1)
Quarter: 2013Q1

REPORT INFORMATION
  Report Type: Spontaneous
  Country: AU (occurrence: AU)
  Receive Date: 20130301
  Receipt Date: 20130301
  Transmission Date: 20140127
  Serious: Yes (Life-Threatening, Hospitalization)
  Sender: FDA-Public Use
  Company Number: AU-ASTRAZENECA-2013SE12594

PATIENT
  Age: 45 Year
  Sex: Male

DRUGS (6)
  1. FENTANYL [Suspect]
  2. BUPIVACAINDE HYDROCHLORIDE [Suspect]
  3. PROPOFOL [Suspect]
     Route: 042
  4. CEFAZOLIN SODIUM [Suspect]
  5. PARECOXIB SODIUM [Suspect]
  6. ROCURONIUM BROMIDE [Suspect]

REACTIONS (1)
  - Anaphylactic reaction [Recovered/Resolved]
